FAERS Safety Report 5049283-8 (Version None)
Quarter: 2006Q3

REPORT INFORMATION
  Report Type: 
  Country: None (occurrence: None)
  Receive Date: 20060706
  Receipt Date: 20060621
  Transmission Date: 20061208
  Serious: Yes (Death)
  Sender: FDA-Public Use
  Company Number: 226576

PATIENT
  Age: 80 Year
  Sex: Male

DRUGS (1)
  1. METALYSE (TENECTEPLASE)PWDR + SOLVENT, INJUECTION SOLN, 50MG [Suspect]
     Indication: ACUTE MYOCARDIAL INFARCTION
     Dosage: SEE IMAGE
     Route: 042
     Dates: start: 20060610, end: 20060610

REACTIONS (4)
  - CARDIAC ARREST [None]
  - EYE ROLLING [None]
  - HEART RATE INCREASED [None]
  - MUSCLE SPASTICITY [None]
